FAERS Safety Report 8423393-7 (Version None)
Quarter: 2012Q2

REPORT INFORMATION
  Report Type: 
  Country: None (occurrence: None)
  Receive Date: 20120608
  Receipt Date: 20120606
  Transmission Date: 20120825
  Serious: Yes (Other)
  Sender: FDA-Public Use
  Company Number: US-TEVA-324130USA

PATIENT
  Sex: Female

DRUGS (3)
  1. ORAL CONTRACEPTIVE NOS [Concomitant]
     Indication: CONTRACEPTION
     Dosage: 1 PILL
     Route: 048
  2. CLARAVIS [Suspect]
     Dosage: 80 MILLIGRAM;
     Route: 048
     Dates: start: 20110726, end: 20120101
  3. ANOVLAR [Concomitant]

REACTIONS (1)
  - UNINTENDED PREGNANCY [None]
